FAERS Safety Report 21519837 (Version 1)
Quarter: 2022Q4

REPORT INFORMATION
  Report Type: Report from Study
  Country: IT (occurrence: IT)
  Receive Date: 20221028
  Receipt Date: 20221028
  Transmission Date: 20230113
  Serious: Yes (Other)
  Sender: FDA-Public Use
  Company Number: IT-UCBSA-2022061942

PATIENT
  Sex: Male

DRUGS (1)
  1. LACOSAMIDE [Suspect]
     Active Substance: LACOSAMIDE
     Indication: Product used for unknown indication
     Dosage: 100MG TABLETS PER DAY

REACTIONS (6)
  - Seizure [Unknown]
  - Spider vein [Unknown]
  - Bedridden [Unknown]
  - Stress [Unknown]
  - Insomnia [Unknown]
  - Tremor [Unknown]
